FAERS Safety Report 5178223-6 (Version None)
Quarter: 2006Q4

REPORT INFORMATION
  Report Type: 
  Country: None (occurrence: None)
  Receive Date: 20061208
  Receipt Date: 20061124
  Transmission Date: 20070319
  Serious: Yes (Death, Hospitalization)
  Sender: FDA-Public Use
  Company Number: AZAKP200600447

PATIENT
  Age: 68 Year
  Sex: Female
  Weight: 33 kg

DRUGS (1)
  1. VIDAZA [Suspect]
     Indication: MYELODYSPLASTIC SYNDROME
     Dosage: 75 MG/M2 (DAILY X 7
     Dates: start: 20061108, end: 20061114

REACTIONS (6)
  - ASCITES [None]
  - BONE MARROW FAILURE [None]
  - NAUSEA [None]
  - PERITONITIS [None]
  - PNEUMONIA [None]
  - VOMITING [None]
